FAERS Safety Report 6195081-1 (Version None)
Quarter: 2009Q2

REPORT INFORMATION
  Report Type: 
  Country: None (occurrence: None)
  Receive Date: 20090519
  Receipt Date: 20090518
  Transmission Date: 20091009
  Serious: No
  Sender: FDA-Public Use
  Company Number: US-ASTRAZENECA-2009UW12665

PATIENT
  Sex: Male
  Weight: 74.8 kg

DRUGS (4)
  1. CRESTOR [Suspect]
     Route: 048
  2. AMOTRAZOL [Concomitant]
  3. ASPIRIN [Concomitant]
  4. CARCIDOPA-LEVO [Concomitant]

REACTIONS (2)
  - ARTHRALGIA [None]
  - THERAPEUTIC RESPONSE UNEXPECTED [None]
